FAERS Safety Report 20450715 (Version 2)
Quarter: 2022Q1

REPORT INFORMATION
  Report Type: Report from Study
  Country: CA (occurrence: CA)
  Receive Date: 20220209
  Receipt Date: 20220308
  Transmission Date: 20220423
  Serious: Yes (Other)
  Sender: FDA-Public Use
  Company Number: CA-ABBVIE-22K-028-4269864-00

PATIENT
  Sex: Male

DRUGS (1)
  1. RINVOQ [Suspect]
     Active Substance: UPADACITINIB
     Indication: Dermatitis atopic
     Route: 048
     Dates: start: 20220126, end: 202202

REACTIONS (9)
  - Cataract [Unknown]
  - Hypoaesthesia [Unknown]
  - Somnolence [Unknown]
  - Glaucomatocyclitic crises [Unknown]
  - Glaucoma [Unknown]
  - Cytomegalovirus syndrome [Unknown]
  - Paraesthesia [Unknown]
  - Retinal oedema [Unknown]
  - Eczema [Not Recovered/Not Resolved]

NARRATIVE: CASE EVENT DATE: 20220101
